FAERS Safety Report 17811526 (Version 1)
Quarter: 2020Q2

REPORT INFORMATION
  Report Type: Spontaneous
  Country: US (occurrence: US)
  Receive Date: 20200521
  Receipt Date: 20200521
  Transmission Date: 20200714
  Serious: No
  Sender: FDA-Public Use
  Company Number: US-PFIZER INC-2020201118

PATIENT
  Sex: Male

DRUGS (4)
  1. IBUPROFEN. [Suspect]
     Active Substance: IBUPROFEN
     Indication: MUSCULOSKELETAL PAIN
     Dosage: UNK
  2. CORTISONE [Suspect]
     Active Substance: CORTISONE
     Indication: MUSCULOSKELETAL PAIN
     Dosage: UNK
  3. IBUPROFEN. [Suspect]
     Active Substance: IBUPROFEN
     Indication: ARTHRITIS
  4. CORTISONE [Suspect]
     Active Substance: CORTISONE
     Indication: ARTHRITIS

REACTIONS (1)
  - Drug ineffective [Unknown]
